FAERS Safety Report 25736811 (Version 2)
Quarter: 2025Q3

REPORT INFORMATION
  Report Type: Spontaneous
  Country: AR (occurrence: AR)
  Receive Date: 20250828
  Receipt Date: 20250904
  Transmission Date: 20251020
  Serious: No
  Sender: NOVARTIS
  Company Number: AR-002147023-NVSC2025AR132993

PATIENT
  Age: 60 Year
  Sex: Male

DRUGS (5)
  1. CYCLOSPORINE [Suspect]
     Active Substance: CYCLOSPORINE
     Indication: Psoriasis
     Route: 065
  2. METHOTREXATE [Concomitant]
     Active Substance: METHOTREXATE
     Indication: Symptomatic treatment
     Route: 065
  3. ACITRETIN [Concomitant]
     Active Substance: ACITRETIN
     Indication: Symptomatic treatment
     Route: 065
  4. ETANERCEPT [Concomitant]
     Active Substance: ETANERCEPT
     Indication: Symptomatic treatment
     Route: 065
  5. ADALIMUMAB [Concomitant]
     Active Substance: ADALIMUMAB
     Indication: Symptomatic treatment
     Route: 065

REACTIONS (2)
  - Psoriasis [Recovering/Resolving]
  - Therapeutic product effect incomplete [Unknown]
